FAERS Safety Report 10432255 (Version 1)
Quarter: 2014Q3

REPORT INFORMATION
  Report Type: Spontaneous
  Country: CA (occurrence: CA)
  Receive Date: 20140905
  Receipt Date: 20140905
  Transmission Date: 20150326
  Serious: Yes (Other)
  Sender: FDA-Public Use
  Company Number: CA-BAYER-2014-130240

PATIENT
  Age: 58 Year
  Sex: Female

DRUGS (1)
  1. BETASERON [Suspect]
     Active Substance: INTERFERON BETA-1B
     Dosage: UNK
     Dates: start: 1997

REACTIONS (3)
  - Multiple sclerosis relapse [None]
  - Multiple sclerosis [None]
  - Multiple sclerosis relapse [None]

NARRATIVE: CASE EVENT DATE: 201402
